FAERS Safety Report 9435419 (Version 1)
Quarter: 2013Q3

REPORT INFORMATION
  Report Type: Spontaneous
  Country: FR (occurrence: FR)
  Receive Date: 20130801
  Receipt Date: 20130801
  Transmission Date: 20140515
  Serious: Yes (Life-Threatening)
  Sender: FDA-Public Use
  Company Number: FR-GLAXOSMITHKLINE-B0910526A

PATIENT
  Age: 42 Year
  Sex: Male

DRUGS (3)
  1. ZINNAT [Suspect]
     Indication: SINOBRONCHITIS
     Route: 048
     Dates: start: 20121231, end: 20121231
  2. POLERY [Concomitant]
     Indication: SINOBRONCHITIS
     Dates: start: 20121231
  3. DERINOX [Concomitant]
     Indication: SINOBRONCHITIS
     Dates: start: 20121231

REACTIONS (8)
  - Anaphylactic shock [Recovered/Resolved]
  - Hyperhidrosis [Recovered/Resolved]
  - Pruritus generalised [Recovered/Resolved]
  - Throat irritation [Recovered/Resolved]
  - Discomfort [Recovered/Resolved]
  - Malaise [Recovered/Resolved]
  - Tachycardia [Recovered/Resolved]
  - Hypotension [Recovered/Resolved]
